FAERS Safety Report 5505123-1 (Version None)
Quarter: 2007Q4

REPORT INFORMATION
  Report Type: 
  Country: None (occurrence: None)
  Receive Date: 20071031
  Receipt Date: 20071018
  Transmission Date: 20080405
  Serious: Yes (Hospitalization, Other)
  Sender: FDA-Public Use
  Company Number: GXKR2007US08982

PATIENT
  Age: 36 Year
  Sex: Female

DRUGS (2)
  1. CARISOPRODOL [Suspect]
     Indication: INCORRECT DOSE ADMINISTERED
     Dosage: 25 DF, QD,
  2. OXYCODONE HCL [Concomitant]

REACTIONS (7)
  - ANXIETY [None]
  - DRUG ABUSER [None]
  - DRUG WITHDRAWAL SYNDROME [None]
  - FEELING JITTERY [None]
  - HALLUCINATIONS, MIXED [None]
  - INSOMNIA [None]
  - TREMOR [None]
